FAERS Safety Report 17144619 (Version 1)
Quarter: 2019Q4

REPORT INFORMATION
  Report Type: Spontaneous
  Country: US (occurrence: US)
  Receive Date: 20191212
  Receipt Date: 20191212
  Transmission Date: 20200122
  Serious: Yes (Other)
  Sender: FDA-Public Use
  Company Number: US-ASTRAZENECA-2019SF79155

PATIENT
  Age: 589 Month
  Sex: Male
  Weight: 108.4 kg

DRUGS (45)
  1. PRILOSEC [Suspect]
     Active Substance: OMEPRAZOLE MAGNESIUM
     Indication: GASTROOESOPHAGEAL REFLUX DISEASE
     Dosage: GENERIC
     Route: 065
     Dates: start: 200508
  2. KETOROLAC TROMETHAMINE. [Concomitant]
     Active Substance: KETOROLAC TROMETHAMINE
     Dates: start: 2008
  3. LOVASTATIN. [Concomitant]
     Active Substance: LOVASTATIN
  4. AZITHROMYCIN ANHYDROUS. [Concomitant]
     Active Substance: AZITHROMYCIN ANHYDROUS
  5. BANOPHEN [Concomitant]
     Active Substance: DIPHENHYDRAMINE HYDROCHLORIDE
  6. MECLIZINE [Concomitant]
     Active Substance: MECLIZINE HYDROCHLORIDE
  7. PAROXETINE. [Concomitant]
     Active Substance: PAROXETINE
  8. HYDROCODONE BITARTRATE AND ACETAMINOPHEN [Concomitant]
     Active Substance: ACETAMINOPHEN\HYDROCODONE BITARTRATE
  9. GLIPIZIDE. [Concomitant]
     Active Substance: GLIPIZIDE
  10. BACLOFEN. [Concomitant]
     Active Substance: BACLOFEN
  11. ASPIRIN. [Concomitant]
     Active Substance: ASPIRIN
     Dates: start: 2006
  12. GLIPIZIDE. [Concomitant]
     Active Substance: GLIPIZIDE
  13. DONNATAL [Concomitant]
     Active Substance: ATROPINE SULFATE\HYOSCYAMINE SULFATE\PHENOBARBITAL\SCOPOLAMINE HYDROBROMIDE
  14. PAROXETINE. [Concomitant]
     Active Substance: PAROXETINE
  15. ZOLPIDEM [Concomitant]
     Active Substance: ZOLPIDEM TARTRATE
  16. VICODIN [Concomitant]
     Active Substance: ACETAMINOPHEN\HYDROCODONE BITARTRATE
  17. DOXEPIN [Concomitant]
     Active Substance: DOXEPIN
  18. DULERA [Concomitant]
     Active Substance: FORMOTEROL FUMARATE DIHYDRATE\MOMETASONE FUROATE
  19. ERGOCALCIFEROL. [Concomitant]
     Active Substance: ERGOCALCIFEROL
  20. NAPROXEN. [Concomitant]
     Active Substance: NAPROXEN
     Indication: PAIN
     Dates: start: 2008
  21. LEVITRA [Concomitant]
     Active Substance: VARDENAFIL HYDROCHLORIDE
  22. METOPROLOL. [Concomitant]
     Active Substance: METOPROLOL
  23. GABAPENTIN. [Concomitant]
     Active Substance: GABAPENTIN
  24. NORTRIPTYLINE [Concomitant]
     Active Substance: NORTRIPTYLINE
  25. HUMALIN [Concomitant]
     Active Substance: INSULIN NOS
  26. TRAZODONE [Concomitant]
     Active Substance: TRAZODONE HYDROCHLORIDE
  27. PANTOPRAZOLE [Suspect]
     Active Substance: PANTOPRAZOLE
     Indication: GASTROOESOPHAGEAL REFLUX DISEASE
     Dosage: GENERIC (40MG INJECTION)
     Route: 065
     Dates: start: 200912, end: 201412
  28. ALPRAZOLAM. [Concomitant]
     Active Substance: ALPRAZOLAM
     Dates: start: 2008
  29. LISINOPRIL. [Concomitant]
     Active Substance: LISINOPRIL
     Dates: start: 2008
  30. LOVASTATIN. [Concomitant]
     Active Substance: LOVASTATIN
  31. XANAX [Concomitant]
     Active Substance: ALPRAZOLAM
  32. LISINOPRIL. [Concomitant]
     Active Substance: LISINOPRIL
  33. BENZONATATE. [Concomitant]
     Active Substance: BENZONATATE
  34. PREDNISONE. [Concomitant]
     Active Substance: PREDNISONE
  35. TRIAMCINOLONE ACETONIDE. [Concomitant]
     Active Substance: TRIAMCINOLONE ACETONIDE
  36. CYANOCOBALAMIN. [Concomitant]
     Active Substance: CYANOCOBALAMIN
  37. ALBUTEROL. [Concomitant]
     Active Substance: ALBUTEROL
  38. PREVACID [Suspect]
     Active Substance: LANSOPRAZOLE
     Indication: GASTROOESOPHAGEAL REFLUX DISEASE
     Route: 065
     Dates: start: 200808
  39. FUROSEMIDE. [Concomitant]
     Active Substance: FUROSEMIDE
     Dates: start: 2008
  40. NASAREL [Concomitant]
     Active Substance: FLUNISOLIDE
  41. CIMETIDINE [Concomitant]
     Active Substance: CIMETIDINE
  42. DICYCLOMINE [Concomitant]
     Active Substance: DICYCLOMINE HYDROCHLORIDE
  43. IPRATROPIUM [Concomitant]
     Active Substance: IPRATROPIUM
  44. PANTOPRAZOLE [Suspect]
     Active Substance: PANTOPRAZOLE
     Indication: GASTROOESOPHAGEAL REFLUX DISEASE
     Dosage: GENERIC (80MG INJECTION)
     Route: 065
     Dates: start: 200912, end: 201412
  45. HYDROCODONE BITARTRATE AND ACETAMINOPHEN [Concomitant]
     Active Substance: ACETAMINOPHEN\HYDROCODONE BITARTRATE
     Dates: start: 2008

REACTIONS (3)
  - Chronic kidney disease [Not Recovered/Not Resolved]
  - Acute kidney injury [Not Recovered/Not Resolved]
  - Nephrogenic anaemia [Unknown]

NARRATIVE: CASE EVENT DATE: 200909
